FAERS Safety Report 23862666 (Version 1)
Quarter: 2024Q2

REPORT INFORMATION
  Report Type: Spontaneous
  Country: CA (occurrence: CA)
  Receive Date: 20240516
  Receipt Date: 20240516
  Transmission Date: 20240716
  Serious: Yes (Other)
  Sender: FDA-Public Use
  Company Number: CA-TEVA-VS-3196084

PATIENT
  Age: 79 Year
  Sex: Female

DRUGS (1)
  1. CEPHALEXIN [Suspect]
     Active Substance: CEPHALEXIN
     Indication: Localised infection
     Dosage: DOSE FORM: NOT SPECIFIED
     Route: 048

REACTIONS (3)
  - Abdominal pain [Unknown]
  - Clostridium test positive [Unknown]
  - Diarrhoea [Unknown]
